FAERS Safety Report 4603335-2 (Version None)
Quarter: 2005Q1

REPORT INFORMATION
  Report Type: 
  Country: None (occurrence: None)
  Receive Date: 20050308
  Receipt Date: 20050223
  Transmission Date: 20050727
  Serious: Yes (Hospitalization)
  Sender: FDA-Public Use
  Company Number: 2005038507

PATIENT

DRUGS (1)
  1. DEPO-MEDROL [Suspect]
     Indication: ILL-DEFINED DISORDER
     Dosage: 40 MG/ML

REACTIONS (2)
  - CHEST PAIN [None]
  - FEELING ABNORMAL [None]
